FAERS Safety Report 15170376 (Version 1)
Quarter: 2018Q3

REPORT INFORMATION
  Report Type: Spontaneous
  Country: IL (occurrence: IL)
  Receive Date: 20180720
  Receipt Date: 20180720
  Transmission Date: 20181010
  Serious: Yes (Other)
  Sender: FDA-Public Use
  Company Number: IL-ROCHE-2157153

PATIENT
  Age: 65 Year
  Sex: Male

DRUGS (4)
  1. ATACAND [Concomitant]
     Active Substance: CANDESARTAN CILEXETIL
  2. FOLIFER (ASCORBIC ACID/CYANOCOBALAMIN/FERROUS FUMARATE/FOLIC ACID) [Suspect]
     Active Substance: ASCORBIC ACID\CYANOCOBALAMIN\FERROUS FUMARATE\FOLIC ACID
     Indication: COLON CANCER METASTATIC
     Route: 065
     Dates: start: 201801, end: 201804
  3. REGORAFENIB. [Suspect]
     Active Substance: REGORAFENIB
     Indication: COLON CANCER METASTATIC
     Route: 065
     Dates: start: 201804, end: 201806
  4. AVASTIN [Suspect]
     Active Substance: BEVACIZUMAB
     Indication: COLON CANCER METASTATIC
     Route: 042
     Dates: start: 201804, end: 201804

REACTIONS (3)
  - Weight decreased [Unknown]
  - Disease progression [Unknown]
  - Pancreatitis [Unknown]
